FAERS Safety Report 20877465 (Version 1)
Quarter: 2022Q2

REPORT INFORMATION
  Report Type: Spontaneous
  Country: US (occurrence: US)
  Receive Date: 20220526
  Receipt Date: 20220526
  Transmission Date: 20220721
  Serious: No
  Sender: FDA-Public Use
  Company Number: US-GALDERMA-US2022006321

PATIENT

DRUGS (4)
  1. DIFFERIN GEL [Suspect]
     Active Substance: ADAPALENE
     Indication: Acne
     Dosage: 1 DOSAGE FORM, QD, AS INSTRUCTED
     Route: 061
     Dates: start: 20220326, end: 2022
  2. DIFFERIN GEL [Suspect]
     Active Substance: ADAPALENE
     Dosage: 1 DOSAGE FORM, QD, AS INSTRUCTED
     Route: 061
     Dates: start: 20220415, end: 20220415
  3. DIFFERIN GEL [Suspect]
     Active Substance: ADAPALENE
     Dosage: 1 DOSAGE FORM, QD, AS INSTRUCTED
     Route: 061
     Dates: start: 20220420, end: 20220420
  4. CLINDAMYCIN [Concomitant]
     Active Substance: CLINDAMYCIN
     Indication: Product used for unknown indication

REACTIONS (8)
  - Swelling face [Recovered/Resolved]
  - Skin exfoliation [Recovered/Resolved]
  - Dry skin [Recovered/Resolved]
  - Acne [Recovered/Resolved]
  - Erythema [Recovered/Resolved]
  - Pain of skin [Recovered/Resolved]
  - Rash erythematous [Recovered/Resolved]
  - Drug ineffective [Recovered/Resolved]

NARRATIVE: CASE EVENT DATE: 20220301
